FAERS Safety Report 8873021 (Version 1)
Quarter: 2012Q4

REPORT INFORMATION
  Report Type: Spontaneous
  Country: US (occurrence: None)
  Receive Date: 20121026
  Receipt Date: 20121026
  Transmission Date: 20130627
  Serious: Yes (Disabling)
  Sender: FDA-Public Use
  Company Number: None

PATIENT
  Age: 16 Year
  Sex: Male
  Weight: 108.86 kg

DRUGS (1)
  1. AZATHIOPRINE [Suspect]
     Indication: CROHN^S DISEASE
     Route: 048
     Dates: start: 20111121, end: 20121025

REACTIONS (11)
  - Oedema peripheral [None]
  - Joint swelling [None]
  - Arthralgia [None]
  - Bone marrow disorder [None]
  - Pain [None]
  - Sensory disturbance [None]
  - Erythema [None]
  - Arthralgia [None]
  - Heart rate increased [None]
  - Blood pressure [None]
  - Headache [None]
